FAERS Safety Report 8117284-9 (Version None)
Quarter: 2012Q1

REPORT INFORMATION
  Report Type: 
  Country: None (occurrence: None)
  Receive Date: 20120206
  Receipt Date: 20120202
  Transmission Date: 20120608
  Serious: Yes (Other)
  Sender: FDA-Public Use
  Company Number: US-PFIZER INC-2012029482

PATIENT
  Age: 87 Year
  Sex: Female
  Weight: 60.771 kg

DRUGS (3)
  1. EFFEXOR XR [Suspect]
     Indication: DEPRESSION
     Dosage: 37.5 MG, 2X/DAY
     Route: 048
     Dates: start: 20120101, end: 20120101
  2. SINGULAIR [Concomitant]
     Indication: ASTHMA
     Dosage: UNK
  3. TRAZODONE [Concomitant]
     Indication: DEPRESSION
     Dosage: UNK

REACTIONS (2)
  - VISUAL ACUITY REDUCED [None]
  - VISION BLURRED [None]
